FAERS Safety Report 7087393-4 (Version None)
Quarter: 2010Q4

REPORT INFORMATION
  Report Type: 
  Country: None (occurrence: None)
  Receive Date: 20101108
  Receipt Date: 20101027
  Transmission Date: 20110411
  Serious: No
  Sender: FDA-Public Use
  Company Number: US-BIOGENIDEC-2010BI011700

PATIENT
  Age: 39 Year
  Sex: Female

DRUGS (1)
  1. TYSABRI [Suspect]
     Indication: MULTIPLE SCLEROSIS
     Route: 042
     Dates: start: 20100125

REACTIONS (11)
  - ABDOMINAL PAIN UPPER [None]
  - BURNING SENSATION [None]
  - FOOD ALLERGY [None]
  - FRACTURE TREATMENT [None]
  - HYPOAESTHESIA [None]
  - HYPOTHYROIDISM [None]
  - IMMUNE SYSTEM DISORDER [None]
  - MENSTRUAL DISORDER [None]
  - MIGRAINE [None]
  - MUSCLE SPASMS [None]
  - TENDONITIS [None]
